FAERS Safety Report 10332722 (Version 2)
Quarter: 2014Q3

REPORT INFORMATION
  Report Type: Report from Study
  Country: BR (occurrence: BR)
  Receive Date: 20140722
  Receipt Date: 20140804
  Transmission Date: 20150326
  Serious: Yes (Other)
  Sender: FDA-Public Use
  Company Number: PHHY2014BR089159

PATIENT
  Sex: Female
  Weight: 62 kg

DRUGS (3)
  1. FRONTAL [Concomitant]
     Active Substance: ALPRAZOLAM
     Indication: SLEEP DISORDER
     Dosage: 1 DF, DAILY
     Route: 048
  2. VALIUM [Concomitant]
     Active Substance: DIAZEPAM
     Indication: DEPRESSION
     Dosage: 1 DF, DAILY
     Route: 048
  3. ACLASTA [Suspect]
     Active Substance: ZOLEDRONIC ACID
     Indication: OSTEOPENIA
     Dosage: 5 MG/100 ML, ONCE A YEAR
     Route: 042
     Dates: start: 2013

REACTIONS (10)
  - Pneumonia [Recovered/Resolved]
  - Pain [Unknown]
  - Pancreatic cyst [Unknown]
  - Intervertebral disc protrusion [Recovering/Resolving]
  - Adrenal cyst [Unknown]
  - Renal cyst [Unknown]
  - Spinal pain [Unknown]
  - Concomitant disease aggravated [Recovering/Resolving]
  - Pyrexia [Recovered/Resolved]
  - Headache [Recovered/Resolved]

NARRATIVE: CASE EVENT DATE: 2013
